FAERS Safety Report 6415709-8 (Version None)
Quarter: 2009Q4

REPORT INFORMATION
  Report Type: 
  Country: None (occurrence: None)
  Receive Date: 20091022
  Receipt Date: 20050328
  Transmission Date: 20100525
  Serious: Yes (Hospitalization)
  Sender: FDA-Public Use
  Company Number: 2009009197

PATIENT
  Age: 56 Year
  Sex: Female
  Weight: 106.5953 kg

DRUGS (3)
  1. ACTIQ [Suspect]
     Indication: MUSCLE ATROPHY
     Dosage: BU
     Route: 002
  2. MORPHINE [Concomitant]
  3. PRILOSEC /00661201/ (OMEPRAZOLE) [Concomitant]

REACTIONS (4)
  - DISEASE PROGRESSION [None]
  - PAIN [None]
  - PAROTITIS [None]
  - POST POLIO SYNDROME [None]
